FAERS Safety Report 17119618 (Version 4)
Quarter: 2022Q1

REPORT INFORMATION
  Report Type: Spontaneous
  Country: FR (occurrence: FR)
  Receive Date: 20191206
  Receipt Date: 20220118
  Transmission Date: 20220423
  Serious: Yes (Hospitalization, Disabling)
  Sender: FDA-Public Use
  Company Number: FR-BOEHRINGERINGELHEIM-2019-BI-117012

PATIENT
  Age: 56 Year
  Sex: Male

DRUGS (17)
  1. PRAMIPEXOLE [Suspect]
     Active Substance: PRAMIPEXOLE
     Indication: Restless legs syndrome
     Dosage: SIFROL 0.18MG, 3 TABLETS IN THE EVENING FOR 3 MONTHS
     Route: 065
     Dates: start: 20081117
  2. PRAMIPEXOLE [Suspect]
     Active Substance: PRAMIPEXOLE
     Dosage: SIFROL 0.7MG, TWO HALF-TABLETS PER DAY
     Route: 065
     Dates: start: 20090915, end: 200910
  3. PRAMIPEXOLE [Suspect]
     Active Substance: PRAMIPEXOLE
     Dosage: THREE HALF-TABLETS PER DAY
     Route: 065
     Dates: start: 20091023
  4. PRAMIPEXOLE [Suspect]
     Active Substance: PRAMIPEXOLE
     Dosage: SIFROL 0.7MG TO HALF A TABLET IN THE MORNING, HALF A TABLET AT LUNCHTIME AND A WHOLE TABLET IN THE E
     Route: 065
     Dates: start: 20091203, end: 201109
  5. PRAMIPEXOLE [Suspect]
     Active Substance: PRAMIPEXOLE
     Dosage: SIFROL 0.7MG TO ONE TABLET IN THE MORNING AND ONE TABLET IN THE EVENING.
     Route: 065
     Dates: start: 201107
  6. OXAZEPAM [Concomitant]
     Active Substance: OXAZEPAM
     Indication: Product used for unknown indication
     Route: 065
     Dates: start: 2011, end: 201304
  7. EFFEXOR [Concomitant]
     Active Substance: VENLAFAXINE HYDROCHLORIDE
     Indication: Product used for unknown indication
     Dosage: FORM STRENGTH: 75
     Route: 065
     Dates: start: 2011
  8. DEPAKOTE [Concomitant]
     Active Substance: DIVALPROEX SODIUM
     Indication: Bipolar disorder
     Route: 065
     Dates: start: 200301, end: 201210
  9. VENLAFAXINE [Concomitant]
     Active Substance: VENLAFAXINE HYDROCHLORIDE
     Indication: Product used for unknown indication
     Route: 065
     Dates: start: 20111004
  10. dilvaproate [Concomitant]
     Indication: Product used for unknown indication
     Route: 065
  11. mianserine 10mg [Concomitant]
     Indication: Product used for unknown indication
     Route: 065
     Dates: start: 20111004
  12. ZOLPIDEM [Concomitant]
     Active Substance: ZOLPIDEM TARTRATE
     Indication: Insomnia
     Route: 065
     Dates: start: 20111004
  13. CYAMEMAZINE [Concomitant]
     Active Substance: CYAMEMAZINE
     Indication: Anxiety
     Route: 065
     Dates: start: 20111004
  14. VALPROMIDE [Concomitant]
     Active Substance: VALPROMIDE
     Indication: Bipolar disorder
     Route: 065
  15. HERBALS\SAW PALMETTO [Concomitant]
     Active Substance: HERBALS\SAW PALMETTO
     Indication: Product used for unknown indication
     Route: 065
     Dates: start: 20111109
  16. PIRIBEDIL [Concomitant]
     Active Substance: PIRIBEDIL
     Indication: Product used for unknown indication
     Dates: start: 2004
  17. LITHIUM [Concomitant]
     Active Substance: LITHIUM
     Indication: Product used for unknown indication
     Dates: start: 2002, end: 2008

REACTIONS (19)
  - Overdose [Recovered/Resolved]
  - Depression [Unknown]
  - Anxiety [Recovered/Resolved]
  - Apathy [Not Recovered/Not Resolved]
  - Peripheral sensory neuropathy [Not Recovered/Not Resolved]
  - Cognitive disorder [Recovered/Resolved]
  - Emotional disorder [Not Recovered/Not Resolved]
  - Procrastination [Not Recovered/Not Resolved]
  - Bipolar disorder [Not Recovered/Not Resolved]
  - General physical health deterioration [Not Recovered/Not Resolved]
  - Compulsive shopping [Recovered/Resolved]
  - Drug ineffective [Unknown]
  - Hepatic steatosis [Unknown]
  - Hyperglycaemia [Unknown]
  - Lymphadenopathy [Unknown]
  - Back pain [Unknown]
  - Obsessive thoughts [Recovered/Resolved]
  - Eating disorder [Unknown]
  - Hypersexuality [Recovered/Resolved]

NARRATIVE: CASE EVENT DATE: 20090101
